FAERS Safety Report 7046038-X (Version None)
Quarter: 2010Q4

REPORT INFORMATION
  Report Type: 
  Country: None (occurrence: None)
  Receive Date: 20101014
  Receipt Date: 20101007
  Transmission Date: 20110411
  Serious: Yes (Other)
  Sender: FDA-Public Use
  Company Number: FR-ABBOTT-10P-056-0676458-00

PATIENT
  Sex: Female

DRUGS (3)
  1. RITONAVIR [Suspect]
     Indication: ANTIRETROVIRAL THERAPY
     Dosage: PATIENT WAS TAKING MEDICATION AT TIME OF CONCEPTION
     Route: 048
  2. TENOFOVIR DISOPROXIL FUMARATE+EMTRICITABINE [Suspect]
     Indication: ANTIRETROVIRAL THERAPY
     Dosage: PATIENT WAS TAKING MEDICATION AT TIME OF CONCEPTION
  3. SAQUINAVIR [Suspect]
     Indication: ANTIRETROVIRAL THERAPY
     Dosage: PATIENT WAS TAKING MEDICATION AT TIME OF CONCEPTION

REACTIONS (1)
  - POLYHYDRAMNIOS [None]
